FAERS Safety Report 21713301 (Version 1)
Quarter: 2022Q4

REPORT INFORMATION
  Report Type: Spontaneous
  Country: US (occurrence: None)
  Receive Date: 20221208
  Receipt Date: 20221208
  Transmission Date: 20230112
  Serious: Yes (Life-Threatening, Hospitalization)
  Sender: FDA-Public Use
  Company Number: None

PATIENT
  Age: 24 Year
  Sex: Male

DRUGS (3)
  1. DIVALPROEX SODIUM [Suspect]
     Active Substance: DIVALPROEX SODIUM
     Indication: Schizoaffective disorder
     Dosage: 1000 MG AT BED TIME PO?
     Route: 048
     Dates: start: 20220822, end: 20220901
  2. OLANZAPINE [Suspect]
     Active Substance: OLANZAPINE
     Indication: Schizoaffective disorder
     Dosage: 15 MG AT BEDTIME PO?
     Route: 048
     Dates: start: 20220812, end: 20220901
  3. SERTRALINE [Suspect]
     Active Substance: SERTRALINE HYDROCHLORIDE

REACTIONS (5)
  - Psychotic disorder [None]
  - Toxicity to various agents [None]
  - Serotonin syndrome [None]
  - Therapy cessation [None]
  - Confusional state [None]

NARRATIVE: CASE EVENT DATE: 20220901
